FAERS Safety Report 20322611 (Version 3)
Quarter: 2022Q1

REPORT INFORMATION
  Report Type: Other
  Country: LB (occurrence: None)
  Receive Date: 20220111
  Receipt Date: 20220208
  Transmission Date: 20220423
  Serious: Yes (Death, Hospitalization)
  Sender: FDA-Public Use
  Company Number: LB-ROCHE-2995439

PATIENT
  Age: 72 Year
  Sex: Male

DRUGS (1)
  1. TECENTRIQ [Suspect]
     Active Substance: ATEZOLIZUMAB
     Indication: Small cell lung cancer
     Route: 041
     Dates: start: 20210323, end: 20211019

REACTIONS (5)
  - Dyspnoea [Not Recovered/Not Resolved]
  - Oedema peripheral [Not Recovered/Not Resolved]
  - Pulmonary oedema [Not Recovered/Not Resolved]
  - Condition aggravated [Unknown]
  - Death [Fatal]

NARRATIVE: CASE EVENT DATE: 20211201
